FAERS Safety Report 10447604 (Version 1)
Quarter: 2014Q3

REPORT INFORMATION
  Report Type: Spontaneous
  Country: US (occurrence: None)
  Receive Date: 20140910
  Receipt Date: 20140910
  Transmission Date: 20150326
  Serious: No
  Sender: FDA-Public Use
  Company Number: None

PATIENT

DRUGS (2)
  1. ZENPEP [Suspect]
     Active Substance: PANCRELIPASE\PANCRELIPASE AMYLASE\PANCRELIPASE LIPASE\PANCRELIPASE PROTEASE
  2. VIMPAT [Suspect]
     Active Substance: LACOSAMIDE

REACTIONS (4)
  - Accidental overdose [None]
  - Product name confusion [None]
  - Wrong drug administered [None]
  - Drug dispensing error [None]
